FAERS Safety Report 14525872 (Version 7)
Quarter: 2018Q4

REPORT INFORMATION
  Report Type: Spontaneous
  Country: IT (occurrence: IT)
  Receive Date: 20180213
  Receipt Date: 20181224
  Transmission Date: 20190204
  Serious: Yes (Life-Threatening, Hospitalization, Other)
  Sender: FDA-Public Use
  Company Number: IT-AUROBINDO-AUR-APL-2018-005718

PATIENT
  Age: 44 Year
  Sex: Male

DRUGS (10)
  1. PIPERACILLIN AND TAZOBACTAM [Suspect]
     Active Substance: PIPERACILLIN SODIUM\TAZOBACTAM SODIUM
     Indication: PROPHYLAXIS
  2. AMOXICILLIN+CLAVULANIC ACID [Suspect]
     Active Substance: AMOXICILLIN\CLAVULANIC ACID
     Indication: HYPERPYREXIA
  3. AMOXICILLIN+CLAVULANIC ACID [Suspect]
     Active Substance: AMOXICILLIN\CLAVULANIC ACID
     Indication: HEADACHE
  4. RIFAMPICIN [Suspect]
     Active Substance: RIFAMPIN
     Indication: PNEUMONIA LEGIONELLA
     Dosage: 900 MG, QD
     Route: 065
  5. CLARITHROMYCIN. [Suspect]
     Active Substance: CLARITHROMYCIN
     Indication: LUNG CONSOLIDATION
     Dosage: 1 G, QD
     Route: 048
  6. PIPERACILLIN AND TAZOBACTAM [Suspect]
     Active Substance: PIPERACILLIN SODIUM\TAZOBACTAM SODIUM
     Indication: LUNG CONSOLIDATION
     Dosage: 13.5 G, UNK
     Route: 042
  7. AMOXICILLIN+CLAVULANIC ACID [Suspect]
     Active Substance: AMOXICILLIN\CLAVULANIC ACID
     Indication: ASTHENIA
     Dosage: UNK
     Route: 048
  8. LEVOFLOXACIN SOLUTION FOR INFUSION [Suspect]
     Active Substance: LEVOFLOXACIN
     Indication: PNEUMONIA LEGIONELLA
     Dosage: 750 MG, QD
     Route: 042
  9. LEVOFLOXACIN SOLUTION FOR INFUSION [Suspect]
     Active Substance: LEVOFLOXACIN
     Indication: LEGIONELLA TEST POSITIVE
     Dosage: 1500 MG, QD
     Route: 042
  10. FLUCONAZOLE. [Suspect]
     Active Substance: FLUCONAZOLE
     Indication: PNEUMONIA LEGIONELLA
     Dosage: 800 MG, QD
     Route: 042

REACTIONS (18)
  - Eosinophil count increased [Recovered/Resolved]
  - Drug ineffective [Unknown]
  - Lymphocyte count decreased [Recovered/Resolved]
  - PCO2 decreased [Recovered/Resolved]
  - PO2 decreased [Recovered/Resolved]
  - CD4/CD8 ratio decreased [Recovered/Resolved]
  - Respiratory distress [Recovered/Resolved]
  - Oxygen saturation decreased [Recovered/Resolved]
  - Neutrophil count decreased [Recovered/Resolved]
  - Pleural effusion [Recovered/Resolved]
  - Blood pH increased [Recovered/Resolved]
  - Pneumonia legionella [Recovered/Resolved]
  - Eosinophilic pneumonia acute [Recovered/Resolved]
  - Pneumothorax [Recovered/Resolved]
  - Lung consolidation [Recovered/Resolved]
  - Muscle fatigue [Recovered/Resolved]
  - Acute respiratory distress syndrome [Recovered/Resolved]
  - Fatigue [Unknown]
